FAERS Safety Report 18048611 (Version 7)
Quarter: 2021Q2

REPORT INFORMATION
  Report Type: Spontaneous
  Country: US (occurrence: US)
  Receive Date: 20200721
  Receipt Date: 20210628
  Transmission Date: 20210717
  Serious: Yes (Hospitalization, Other)
  Sender: FDA-Public Use
  Company Number: US-DECIPHERA PHARMACEUTICALS LLC-2020-US-000274

PATIENT
  Sex: Male

DRUGS (3)
  1. QINLOCK [Suspect]
     Active Substance: RIPRETINIB
     Indication: GASTROINTESTINAL STROMAL TUMOUR
     Dosage: 150 MILLIGRAM, QD, QPM
     Route: 048
     Dates: start: 20200627
  2. QINLOCK [Suspect]
     Active Substance: RIPRETINIB
     Dosage: 200 MILLIGRAM, QD
     Route: 048
  3. QINLOCK [Suspect]
     Active Substance: RIPRETINIB
     Dosage: 150 MILLIGRAM, QD
     Route: 048

REACTIONS (15)
  - Dizziness [Recovered/Resolved]
  - Oedema peripheral [Unknown]
  - Neoplasm progression [Unknown]
  - Abdominal pain upper [Recovered/Resolved]
  - Nausea [Recovered/Resolved]
  - Implant site haemorrhage [Unknown]
  - Fatigue [Recovering/Resolving]
  - Scab [Unknown]
  - Extra dose administered [Unknown]
  - Blood urea increased [Unknown]
  - Tooth extraction [Unknown]
  - Diarrhoea [Recovered/Resolved]
  - Dyspnoea [Unknown]
  - Cardiac failure congestive [Unknown]
  - Dialysis [Unknown]
